FAERS Safety Report 7561584-8 (Version None)
Quarter: 2011Q2

REPORT INFORMATION
  Report Type: 
  Country: None (occurrence: None)
  Receive Date: 20110621
  Receipt Date: 20110121
  Transmission Date: 20111010
  Serious: No
  Sender: FDA-Public Use
  Company Number: US-ASTRAZENECA-2011SE03956

PATIENT
  Age: 78 Year
  Sex: Female

DRUGS (7)
  1. LISINOPRIL [Concomitant]
  2. THYROID MEDICATION [Concomitant]
  3. PROVENTIL [Concomitant]
  4. PULMICORT FLEXHALER [Suspect]
     Indication: EMPHYSEMA
     Dosage: 180 MCG, 2 PUFFS EVERYDAY
     Route: 055
     Dates: start: 20101101
  5. IPRATROPIUM BROMIDE [Concomitant]
  6. ALBUTEROL [Concomitant]
  7. XANAX [Concomitant]

REACTIONS (3)
  - DYSPNOEA [None]
  - CHEST DISCOMFORT [None]
  - CHRONIC OBSTRUCTIVE PULMONARY DISEASE [None]
